FAERS Safety Report 4986855-0 (Version None)
Quarter: 2006Q2

REPORT INFORMATION
  Report Type: 
  Country: None (occurrence: None)
  Receive Date: 20060428
  Receipt Date: 20060324
  Transmission Date: 20061013
  Serious: Yes (Life-Threatening)
  Sender: FDA-Public Use
  Company Number: GB-ABBOTT-06P-167-0330675-00

PATIENT
  Sex: Female
  Weight: 82 kg

DRUGS (8)
  1. HUMIRA [Suspect]
     Indication: RHEUMATOID ARTHRITIS
     Route: 058
     Dates: start: 20060123, end: 20060320
  2. FOLIC ACID [Concomitant]
     Indication: VITAMIN SUPPLEMENTATION
     Route: 048
     Dates: start: 20040601
  3. AMITRIPTYLINE HCL [Concomitant]
     Indication: INSOMNIA
     Route: 048
     Dates: start: 20040901
  4. AMITRIPTYLINE HCL [Concomitant]
     Indication: ANALGESIC EFFECT
  5. LEKOVIT CA [Concomitant]
     Indication: DRUG USE FOR UNKNOWN INDICATION
  6. PARACETAMOL [Concomitant]
     Indication: PAIN
  7. SULFASALAZINE [Concomitant]
     Indication: RHEUMATOID ARTHRITIS
     Route: 048
     Dates: start: 20031003
  8. ENBREL [Concomitant]
     Indication: RHEUMATOID ARTHRITIS
     Dates: start: 20050531

REACTIONS (3)
  - FEAR [None]
  - SWOLLEN TONGUE [None]
  - TINNITUS [None]
